FAERS Safety Report 5109176-4 (Version None)
Quarter: 2006Q3

REPORT INFORMATION
  Report Type: 
  Country: None (occurrence: None)
  Receive Date: 20060918
  Receipt Date: 20060829
  Transmission Date: 20061208
  Serious: Yes (Hospitalization, Other)
  Sender: FDA-Public Use
  Company Number: US200607001505

PATIENT
  Age: 54 Year
  Sex: Female
  Weight: 63.5 kg

DRUGS (11)
  1. CYMBALTA [Suspect]
     Indication: DEPRESSION
     Dosage: SEE IMAGE
     Dates: start: 20050101
  2. EVISTA [Concomitant]
  3. ZOCOR [Concomitant]
  4. MORPHINE [Concomitant]
  5. KLONOPIN [Concomitant]
  6. TRAZODONE HCL [Concomitant]
  7. TOPAMAX [Concomitant]
  8. MILK OF MAGNESIA TAB [Concomitant]
  9. DUONEB [Concomitant]
  10. COMPAZINE [Concomitant]
  11. PRILOSEC [Concomitant]

REACTIONS (6)
  - CONTUSION [None]
  - GASTROINTESTINAL MOTILITY DISORDER [None]
  - HAEMOGLOBIN INCREASED [None]
  - INFUSION SITE REACTION [None]
  - INTESTINAL OBSTRUCTION [None]
  - SKIN HAEMORRHAGE [None]
